FAERS Safety Report 5374811-2 (Version None)
Quarter: 2007Q2

REPORT INFORMATION
  Report Type: 
  Country: None (occurrence: None)
  Receive Date: 20070629
  Receipt Date: 20070626
  Transmission Date: 20071010
  Serious: Yes (Hospitalization)
  Sender: FDA-Public Use
  Company Number: A0660260A

PATIENT
  Sex: Female

DRUGS (7)
  1. AVANDIA [Suspect]
     Dosage: 8MG TWICE PER DAY
     Route: 048
  2. UNSPECIFIED MEDICATION [Concomitant]
  3. PREDNISONE TAB [Concomitant]
  4. AVANDAMET [Concomitant]
  5. LIPITOR [Concomitant]
  6. UNSPECIFIED MEDICATION [Concomitant]
  7. ATENOLOL [Concomitant]

REACTIONS (2)
  - CHEST PAIN [None]
  - MYOCARDIAL INFARCTION [None]
